FAERS Safety Report 5973080-X (Version None)
Quarter: 2008Q4

REPORT INFORMATION
  Report Type: 
  Country: None (occurrence: None)
  Receive Date: 20081201
  Receipt Date: 20081119
  Transmission Date: 20090506
  Serious: Yes (Other)
  Sender: FDA-Public Use
  Company Number: US-ROCHE-584723

PATIENT
  Sex: Male
  Weight: 101.6 kg

DRUGS (21)
  1. PEG-INTERFERON A-2A (RO 25-8310) [Suspect]
     Indication: HEPATITIS C
     Dosage: FORM: PFS. COMPLETED 18 WEEKS OF THERAPY
     Route: 065
     Dates: start: 20080620, end: 20081020
  2. RIBAVIRIN [Suspect]
     Indication: HEPATITIS C
     Dosage: FORM REPORTED AS: PILL. COMPLETED 18 WEEKS OF THERAPY
     Route: 065
     Dates: start: 20080620, end: 20081020
  3. PAXIL [Concomitant]
  4. WELLBUTRIN [Concomitant]
     Dosage: FREQUENCY: DAILY
  5. PHENERGAN HCL [Concomitant]
  6. ZOFRAN [Concomitant]
  7. HYDROCODONE BITARTRATE [Concomitant]
  8. CLONAZEPAM [Concomitant]
  9. TRAZODONE HCL [Concomitant]
     Dosage: FREQUENCY: QHS
     Route: 048
  10. XANAX [Concomitant]
  11. ALTACE [Concomitant]
     Dosage: FREQUENCY: QD
     Route: 048
  12. BUPROPION HCL [Concomitant]
     Dosage: DRUG: BUPROPION HCL SR
     Route: 048
  13. PLAVIX [Concomitant]
     Dosage: FREQUENCY: QD
     Route: 048
  14. PAROXETINE HCL [Concomitant]
     Dosage: FREQUENCY: QD
     Route: 048
  15. PREVACID [Concomitant]
     Dosage: FORM: SOLUTAB, FREQUENCY: QD
     Route: 048
  16. ALBUTEROL [Concomitant]
  17. IPRATROPIUM BROMIDE [Concomitant]
  18. ALBUTEROL [Concomitant]
     Dosage: DRUG REPORTED: ALBUTEROL SULFATE
  19. FLUCONAZOLE [Concomitant]
     Dosage: FREQUENCY: QD
  20. FEXOFENADINE HCL [Concomitant]
  21. FLUTICASONE PROPIONATE NASAL SPRAY [Concomitant]
     Dosage: FORM: SPRAY, FREQUENCY: Q4-6H PRN
     Route: 058

REACTIONS (16)
  - ALOPECIA [None]
  - AMNESIA [None]
  - ARTHRALGIA [None]
  - ASPERMIA [None]
  - BACK PAIN [None]
  - CANDIDIASIS [None]
  - CHEST PAIN [None]
  - DRUG ERUPTION [None]
  - FALL [None]
  - FEELING ABNORMAL [None]
  - HAEMORRHOIDS [None]
  - HOMICIDAL IDEATION [None]
  - NASOPHARYNGITIS [None]
  - PAINFUL DEFAECATION [None]
  - SKIN ULCER [None]
  - WEIGHT DECREASED [None]
